FAERS Safety Report 9694973 (Version 1)
Quarter: 2013Q4

REPORT INFORMATION
  Report Type: Spontaneous
  Country: CA (occurrence: CA)
  Receive Date: 20131119
  Receipt Date: 20131119
  Transmission Date: 20140711
  Serious: Yes (Hospitalization)
  Sender: FDA-Public Use
  Company Number: CA-AMGEN-CANSP2013080707

PATIENT
  Sex: Female
  Weight: 73.92 kg

DRUGS (1)
  1. PROLIA [Suspect]
     Indication: PRODUCT USED FOR UNKNOWN INDICATION
     Dosage: 60 MG, UNK
     Route: 058

REACTIONS (7)
  - Feeling abnormal [Unknown]
  - Headache [Unknown]
  - Head discomfort [Unknown]
  - Injection site erythema [Unknown]
  - Injection site pain [Unknown]
  - Syncope [Unknown]
  - Erythema [Unknown]
